FAERS Safety Report 9507739 (Version 1)
Quarter: 2013Q1

REPORT INFORMATION
  Report Type: Spontaneous
  Country: US (occurrence: None)
  Receive Date: 20130305
  Receipt Date: 20130305
  Transmission Date: 20140127
  Serious: Yes (Other)
  Sender: FDA-Public Use
  Company Number: 163-21880-12051218

PATIENT
  Age: 68 Year
  Sex: Male

DRUGS (4)
  1. REVLIMID (LENALIDOMIDE) (25 MILLIGRAM, CAPSULES) [Suspect]
     Indication: PLASMA CELL MYELOMA
     Route: 048
     Dates: start: 20120413
  2. PEPCID (FAMOTIDINE) [Concomitant]
  3. ATARAX (HYDROXYZINE HYDROCHLORIDE) [Concomitant]
  4. STEROID (CORTICOSTEROIDS, PLAIN) [Concomitant]

REACTIONS (1)
  - Rash pruritic [None]
